FAERS Safety Report 4713070-8 (Version None)
Quarter: 2005Q3

REPORT INFORMATION
  Report Type: 
  Country: None (occurrence: None)
  Receive Date: 20050701
  Receipt Date: 20040810
  Transmission Date: 20060218
  Serious: Yes (Other)
  Sender: FDA-Public Use
  Company Number: 2004053051

PATIENT
  Sex: Male
  Weight: 90.7194 kg

DRUGS (3)
  1. ZOLOFT [Suspect]
     Indication: DEPRESSION
     Dosage: 150 MG (50 MG, 1 IN 1 D)
     Dates: start: 20040101
  2. CLONAZEPAM [Concomitant]
  3. ZOLPIDEM TARTRATE [Concomitant]

REACTIONS (4)
  - DEPRESSION [None]
  - HICCUPS [None]
  - NON-CARDIAC CHEST PAIN [None]
  - SUICIDAL IDEATION [None]
